FAERS Safety Report 4404513-8 (Version None)
Quarter: 2004Q3

REPORT INFORMATION
  Report Type: 
  Country: None (occurrence: None)
  Receive Date: 20040720
  Receipt Date: 20040705
  Transmission Date: 20050211
  Serious: Yes (Hospitalization)
  Sender: FDA-Public Use
  Company Number: 191701

PATIENT
  Age: 32 Year
  Sex: Female
  Weight: 65 kg

DRUGS (4)
  1. AVONEX [Suspect]
     Indication: MULTIPLE SCLEROSIS
     Dosage: 30 MCG QW IM
     Route: 030
     Dates: start: 20030601
  2. PAROXETINE HCL [Concomitant]
  3. ZOVIRAX ^BURROUGHS^ [Concomitant]
  4. ZELITREX [Concomitant]

REACTIONS (2)
  - JOINT SWELLING [None]
  - PAIN [None]
